FAERS Safety Report 8125903-6 (Version None)
Quarter: 2012Q1

REPORT INFORMATION
  Report Type: 
  Country: None (occurrence: None)
  Receive Date: 20120209
  Receipt Date: 20120131
  Transmission Date: 20120608
  Serious: Yes (Hospitalization)
  Sender: FDA-Public Use
  Company Number: CA-ELI_LILLY_AND_COMPANY-CA201201002676

PATIENT
  Sex: Female
  Weight: 56.689 kg

DRUGS (4)
  1. HUMULIN N [Suspect]
     Dosage: 36 U, EACH MORNING
  2. HUMULIN N [Suspect]
     Dosage: 10 U, EACH EVENING
  3. HUMULIN R [Suspect]
     Dosage: 6 U, EACH EVENING
  4. HUMULIN R [Suspect]
     Dosage: 12 U, EACH MORNING

REACTIONS (1)
  - SPINAL CORD OPERATION [None]
